FAERS Safety Report 18707907 (Version 3)
Quarter: 2021Q4

REPORT INFORMATION
  Report Type: Report from Study
  Country: JP (occurrence: JP)
  Receive Date: 20210106
  Receipt Date: 20211203
  Transmission Date: 20220303
  Serious: Yes (Hospitalization)
  Sender: FDA-Public Use
  Company Number: JP-ACTELION-A-CH2017-157107

PATIENT
  Age: 2 Year
  Sex: Male
  Weight: 13.9 kg

DRUGS (19)
  1. OPSUMIT [Suspect]
     Active Substance: MACITENTAN
     Indication: Pulmonary arterial hypertension
     Dosage: 1 MG, BID
     Route: 048
     Dates: start: 20161124, end: 20170111
  2. OPSUMIT [Suspect]
     Active Substance: MACITENTAN
     Dosage: 1.5 MG, BID
     Route: 048
     Dates: start: 20170112, end: 20180712
  3. OPSUMIT [Suspect]
     Active Substance: MACITENTAN
     Dosage: 2 MG, BID
     Route: 048
     Dates: start: 20180713
  4. UPTRAVI [Suspect]
     Active Substance: SELEXIPAG
     Indication: Pulmonary arterial hypertension
     Dosage: 0.05 MG, BID
     Route: 048
     Dates: start: 20180328, end: 20180423
  5. UPTRAVI [Suspect]
     Active Substance: SELEXIPAG
     Indication: Pulmonary arterial hypertension
     Dosage: 0.1 MG, BID
     Route: 048
     Dates: start: 20180424, end: 20180531
  6. UPTRAVI [Suspect]
     Active Substance: SELEXIPAG
     Dosage: 0.15 MG, BID
     Route: 048
     Dates: start: 20180601, end: 20180620
  7. UPTRAVI [Suspect]
     Active Substance: SELEXIPAG
     Dosage: 0.2 MG, BID
     Route: 048
     Dates: start: 20180621, end: 20181206
  8. UPTRAVI [Suspect]
     Active Substance: SELEXIPAG
     Route: 048
     Dates: start: 20181207, end: 20190117
  9. UPTRAVI [Suspect]
     Active Substance: SELEXIPAG
     Route: 048
     Dates: start: 20190118, end: 20190228
  10. UPTRAVI [Suspect]
     Active Substance: SELEXIPAG
     Route: 048
     Dates: start: 20190301
  11. ADCIRCA [Suspect]
     Active Substance: TADALAFIL
     Indication: Pulmonary arterial hypertension
     Dosage: 8 MG, QD
     Route: 048
     Dates: start: 20161204, end: 20180208
  12. ADCIRCA [Suspect]
     Active Substance: TADALAFIL
     Dosage: 10 MG, QD
     Route: 048
     Dates: start: 20180209
  13. ADCIRCA [Suspect]
     Active Substance: TADALAFIL
     Dosage: 10 MG, QD
     Route: 048
     Dates: start: 20140829
  14. VENTAVIS [Concomitant]
     Active Substance: ILOPROST
     Indication: Pulmonary arterial hypertension
  15. CARBOCYSTEINE [Concomitant]
     Active Substance: CARBOCYSTEINE
  16. PRANLUKAST [Concomitant]
     Active Substance: PRANLUKAST
  17. EPHEDRA SINICA STEM\HERBALS [Concomitant]
     Active Substance: EPHEDRA SINICA STEM\HERBALS
  18. HYDROXYZINE HYDROCHLORIDE [Concomitant]
     Active Substance: HYDROXYZINE HYDROCHLORIDE
  19. OXYGEN [Concomitant]
     Active Substance: OXYGEN

REACTIONS (14)
  - Respiratory syncytial virus infection [Recovering/Resolving]
  - Cough [Recovering/Resolving]
  - Rhinorrhoea [Recovering/Resolving]
  - Pyrexia [Recovering/Resolving]
  - Dysphagia [Recovering/Resolving]
  - Pneumonia [Recovering/Resolving]
  - Aphthous ulcer [Recovering/Resolving]
  - White blood cell count increased [Recovered/Resolved]
  - Blood alkaline phosphatase increased [Recovered/Resolved]
  - Anaemia [Not Recovered/Not Resolved]
  - Platelet count increased [Recovered/Resolved]
  - Brain natriuretic peptide increased [Recovered/Resolved]
  - Diarrhoea [Recovered/Resolved]
  - Off label use [Unknown]

NARRATIVE: CASE EVENT DATE: 20161212
